FAERS Safety Report 6001397-1 (Version None)
Quarter: 2008Q4

REPORT INFORMATION
  Report Type: 
  Country: None (occurrence: None)
  Receive Date: 20081215
  Receipt Date: 20081203
  Transmission Date: 20090506
  Serious: Yes (Other)
  Sender: FDA-Public Use
  Company Number: CH-ELI_LILLY_AND_COMPANY-CH200812001521

PATIENT
  Age: 50 Year
  Sex: Female

DRUGS (1)
  1. CYMBALTA [Suspect]
     Indication: DEPRESSION
     Dosage: 30 MG, UNKNOWN
     Route: 065

REACTIONS (10)
  - ACCIDENT [None]
  - CONTUSION [None]
  - DIZZINESS [None]
  - DRUG INTOLERANCE [None]
  - FATIGUE [None]
  - HALLUCINATION [None]
  - LOSS OF CONSCIOUSNESS [None]
  - PAROSMIA [None]
  - TRAUMATIC BRAIN INJURY [None]
  - TRAUMATIC HAEMATOMA [None]
